FAERS Safety Report 5141844-0 (Version None)
Quarter: 2006Q4

REPORT INFORMATION
  Report Type: 
  Country: None (occurrence: None)
  Receive Date: 20061027
  Receipt Date: 20061006
  Transmission Date: 20070319
  Serious: Yes (Death)
  Sender: FDA-Public Use
  Company Number: 2006SP003991

PATIENT
  Age: 60 Year
  Sex: Male

DRUGS (2)
  1. PEG-INTRON [Suspect]
     Indication: HEPATITIS C
     Dosage: SC
     Route: 058
     Dates: start: 20060901
  2. REBETOL [Suspect]
     Indication: HEPATITIS C
     Dosage: 200 MG;PO
     Route: 048
     Dates: start: 20060901

REACTIONS (1)
  - DEATH [None]
